FAERS Safety Report 22108193 (Version 2)
Quarter: 2023Q1

REPORT INFORMATION
  Report Type: Spontaneous
  Country: ES (occurrence: ES)
  Receive Date: 20230317
  Receipt Date: 20230321
  Transmission Date: 20230417
  Serious: Yes (Other)
  Sender: FDA-Public Use
  Company Number: ES-ALK-ABELLO A/S-2023AA001104

PATIENT

DRUGS (8)
  1. APIS MELLIFERA [Suspect]
     Active Substance: APIS MELLIFERA
     Indication: Allergy to venom
     Dosage: UNK
  2. APIS MELLIFERA [Suspect]
     Active Substance: APIS MELLIFERA
     Dosage: 100 MICROGRAM
  3. APIS MELLIFERA [Suspect]
     Active Substance: APIS MELLIFERA
     Indication: Allergy to venom
     Dosage: UNK
  4. APIS MELLIFERA [Suspect]
     Active Substance: APIS MELLIFERA
     Dosage: 100 MICROGRAM
  5. APIS MELLIFERA [Suspect]
     Active Substance: APIS MELLIFERA
     Indication: Allergy to venom
     Dosage: UNK
  6. APIS MELLIFERA [Suspect]
     Active Substance: APIS MELLIFERA
     Dosage: 100 MICROGRAM
  7. OMALIZUMAB [Concomitant]
     Active Substance: OMALIZUMAB
     Dosage: 300 MILLIGRAM
  8. OMALIZUMAB [Concomitant]
     Active Substance: OMALIZUMAB
     Dosage: 450 MILLIGRAM

REACTIONS (7)
  - Anaphylactic reaction [Unknown]
  - Hypersensitivity [Unknown]
  - Hypersensitivity [Unknown]
  - Hypersensitivity [Unknown]
  - Rhinorrhoea [Recovered/Resolved]
  - Hyperhidrosis [Recovered/Resolved]
  - Cough [Recovered/Resolved]
